FAERS Safety Report 7113845-4 (Version None)
Quarter: 2010Q4

REPORT INFORMATION
  Report Type: 
  Country: None (occurrence: None)
  Receive Date: 20101119
  Receipt Date: 20101109
  Transmission Date: 20110411
  Serious: Yes (Hospitalization)
  Sender: FDA-Public Use
  Company Number: US-ASTRAZENECA-2010SE53538

PATIENT
  Sex: Female

DRUGS (2)
  1. SYMBICORT [Suspect]
     Indication: ASTHMA
     Route: 055
  2. PULMICORT FLEXHALER [Suspect]
     Indication: ASTHMA
     Dosage: 2 PUFFS ONCE DAILY
     Route: 055

REACTIONS (6)
  - COUGH [None]
  - DRUG DOSE OMISSION [None]
  - DRUG INTOLERANCE [None]
  - DYSPNOEA [None]
  - PALPITATIONS [None]
  - TONGUE OEDEMA [None]
